FAERS Safety Report 23444049 (Version 2)
Quarter: 2024Q2

REPORT INFORMATION
  Report Type: Spontaneous
  Country: JP (occurrence: JP)
  Receive Date: 20240125
  Receipt Date: 20240405
  Transmission Date: 20240716
  Serious: No
  Sender: FDA-Public Use
  Company Number: JP-Eisai-202312682_DVG_P_1

PATIENT
  Sex: Male

DRUGS (1)
  1. DAYVIGO [Suspect]
     Active Substance: LEMBOREXANT
     Indication: Product used for unknown indication
     Route: 048

REACTIONS (3)
  - Withdrawal syndrome [Not Recovered/Not Resolved]
  - Headache [Not Recovered/Not Resolved]
  - Nightmare [Not Recovered/Not Resolved]
